FAERS Safety Report 7287671-X (Version None)
Quarter: 2011Q1

REPORT INFORMATION
  Report Type: 
  Country: None (occurrence: None)
  Receive Date: 20110208
  Receipt Date: 20110208
  Transmission Date: 20110831
  Serious: Yes (Other)
  Sender: FDA-Public Use
  Company Number: None

PATIENT
  Age: 53 Year
  Sex: Male
  Weight: 77.1115 kg

DRUGS (2)
  1. INTERFERON ROCHE [Suspect]
     Indication: HEPATITIS C
     Dosage: 180 1 PER WEEK
     Dates: start: 20091001, end: 20100324
  2. RIBAVIRIN [Suspect]
     Dosage: 2 TIMES PER DAY

REACTIONS (9)
  - OEDEMA PERIPHERAL [None]
  - HYPOTHYROIDISM [None]
  - FATIGUE [None]
  - MYALGIA [None]
  - INSOMNIA [None]
  - FEELING ABNORMAL [None]
  - RETINAL HAEMORRHAGE [None]
  - ARTHRALGIA [None]
  - BODY TEMPERATURE DECREASED [None]
